FAERS Safety Report 9746433 (Version 1)
Quarter: 2013Q4

REPORT INFORMATION
  Report Type: Spontaneous
  Country: IN (occurrence: IN)
  Receive Date: 20131211
  Receipt Date: 20131211
  Transmission Date: 20140711
  Serious: Yes (Hospitalization)
  Sender: FDA-Public Use
  Company Number: PHHY2013IN141043

PATIENT
  Age: 68 Year
  Sex: Female

DRUGS (5)
  1. CLONAZEPAM [Suspect]
     Indication: DYSKINESIA
  2. PHENYTOIN [Suspect]
     Indication: DYSKINESIA
  3. CARBAMAZEPINE [Suspect]
  4. LAMOTRIGINE [Suspect]
  5. VALPROIC ACID [Suspect]

REACTIONS (3)
  - Hyponatraemia [Recovered/Resolved]
  - Somnolence [Recovered/Resolved]
  - Drug ineffective [Unknown]
